FAERS Safety Report 6746333-5 (Version None)
Quarter: 2010Q2

REPORT INFORMATION
  Report Type: 
  Country: None (occurrence: None)
  Receive Date: 20100528
  Receipt Date: 20100517
  Transmission Date: 20101027
  Serious: Yes (Hospitalization)
  Sender: FDA-Public Use
  Company Number: FR-PFIZER INC-2010061263

PATIENT
  Age: 87 Year
  Sex: Female

DRUGS (11)
  1. ALDACTONE [Suspect]
     Indication: HYPERTENSION
     Dosage: 50 MG, DAILY
     Route: 048
     Dates: end: 20090519
  2. ACTISKENAN [Suspect]
     Indication: BACK PAIN
     Dosage: 10 MG, 3X/DAY
     Route: 048
     Dates: start: 20090401, end: 20090519
  3. ARICEPT [Suspect]
     Indication: DEMENTIA ALZHEIMER'S TYPE
     Dosage: 10 MG, DAILY
     Route: 048
  4. DURAGESIC-100 [Suspect]
     Indication: BACK PAIN
     Dosage: 1 DF, EVERY 3 DAYS
     Route: 062
     Dates: start: 20090501
  5. DEROXAT [Suspect]
     Indication: DEPRESSION
     Dosage: 20 MG, DAILY
     Route: 048
     Dates: end: 20090519
  6. NEXIUM [Suspect]
     Dosage: 20 MG, DAILY
     Route: 048
  7. DIAMICRON [Suspect]
     Indication: TYPE 2 DIABETES MELLITUS
     Dosage: 30 MG, DAILY
     Route: 048
  8. COVERSYL [Suspect]
     Indication: HYPERTENSION
     Dosage: 4 MG, DAILY
     Route: 048
  9. FOSAMAX [Concomitant]
     Indication: OSTEOPOROSIS
     Dosage: 10 MG, WEEKLY
     Route: 048
  10. BI-PROFENID [Concomitant]
     Indication: PAIN
     Dosage: 150 MG, 3X/DAY
     Route: 048
     Dates: start: 20090517, end: 20090519
  11. DOLIPRANE [Concomitant]
     Indication: PAIN
     Dosage: 1 G, 3X/DAY
     Route: 048

REACTIONS (3)
  - CONFUSIONAL STATE [None]
  - FALL [None]
  - HYPONATRAEMIA [None]
